FAERS Safety Report 11289092 (Version 1)
Quarter: 2015Q3

REPORT INFORMATION
  Report Type: Spontaneous
  Country: US (occurrence: US)
  Receive Date: 20150721
  Receipt Date: 20150721
  Transmission Date: 20151125
  Serious: No
  Sender: FDA-Public Use
  Company Number: US-UNITED THERAPEUTICS-UNT-2015-000370

PATIENT
  Age: 33 Year
  Sex: Female
  Weight: 74.38 kg

DRUGS (3)
  1. ADCIRCA [Concomitant]
     Active Substance: TADALAFIL
     Indication: PRODUCT USED FOR UNKNOWN INDICATION
  2. OPSUMIT [Concomitant]
     Active Substance: MACITENTAN
     Indication: PRODUCT USED FOR UNKNOWN INDICATION
  3. REMODULIN [Suspect]
     Active Substance: TREPROSTINIL
     Indication: PULMONARY ARTERIAL HYPERTENSION
     Dosage: 0.056 ?G/KG/MIN, CONTINUING
     Route: 058
     Dates: start: 20140613

REACTIONS (8)
  - Vomiting [Recovered/Resolved]
  - Infusion site erythema [Unknown]
  - Headache [Unknown]
  - Incorrect dose administered [Recovered/Resolved]
  - Nausea [Unknown]
  - Erythema [Recovered/Resolved]
  - Wrong technique in product usage process [Recovered/Resolved]
  - Infusion site pain [Unknown]

NARRATIVE: CASE EVENT DATE: 20150113
